FAERS Safety Report 9692814 (Version 1)
Quarter: 2013Q4

REPORT INFORMATION
  Report Type: Spontaneous
  Country: US (occurrence: None)
  Receive Date: 20131115
  Receipt Date: 20131115
  Transmission Date: 20140711
  Serious: Yes (Hospitalization)
  Sender: FDA-Public Use
  Company Number: None

PATIENT
  Age: 85 Year
  Sex: Male
  Weight: 61.4 kg

DRUGS (2)
  1. CEFTRIAXONE [Suspect]
     Route: 042
     Dates: start: 20130531, end: 20130610
  2. PIPERACILLIN/TAZOBACTAM [Suspect]
     Route: 042
     Dates: start: 20130531, end: 20130610

REACTIONS (5)
  - Flank pain [None]
  - Depressed level of consciousness [None]
  - Urosepsis [None]
  - Calculus bladder [None]
  - Clostridium difficile colitis [None]
